FAERS Safety Report 20840321 (Version 2)
Quarter: 2024Q4

REPORT INFORMATION
  Report Type: Spontaneous
  Country: US (occurrence: US)
  Receive Date: 20220517
  Receipt Date: 20241226
  Transmission Date: 20250115
  Serious: No
  Sender: PFIZER
  Company Number: US-PFIZER INC-202200657533

PATIENT
  Age: 68 Year
  Sex: Female

DRUGS (2)
  1. IBRANCE [Suspect]
     Active Substance: PALBOCICLIB
     Indication: Breast cancer female
     Dosage: 100 MG, CYCLIC (1 CAPSULE WITH FOOD ORALLY FOR 21 DAYS THEN OFF 7 DAYS THEN REPEAT)
     Route: 048
  2. IBRANCE [Suspect]
     Active Substance: PALBOCICLIB
     Dosage: 100 MG, CYCLIC (1 PO QD FOR 21 DAYS THEN TAKE 7 DAYS OFF)
     Route: 048

REACTIONS (2)
  - Drug hypersensitivity [Unknown]
  - Initial insomnia [Unknown]
